FAERS Safety Report 4681922-3 (Version None)
Quarter: 2005Q2

REPORT INFORMATION
  Report Type: 
  Country: None (occurrence: None)
  Receive Date: 20050602
  Receipt Date: 20050517
  Transmission Date: 20051028
  Serious: Yes (Hospitalization)
  Sender: FDA-Public Use
  Company Number: 2005EU000975

PATIENT
  Age: 52 Year
  Sex: Female

DRUGS (2)
  1. PROGRAF [Suspect]
  2. MYCOPHENOLATE MOFETIL [Concomitant]

REACTIONS (2)
  - ENDOCARDITIS BACTERIAL [None]
  - SALMONELLOSIS [None]
